FAERS Safety Report 8862294 (Version 2)
Quarter: 2013Q2

REPORT INFORMATION
  Report Type: Spontaneous
  Country: US (occurrence: US)
  Receive Date: 20121026
  Receipt Date: 20130419
  Transmission Date: 20140414
  Serious: Yes (Hospitalization, Disabling, Other)
  Sender: FDA-Public Use
  Company Number: US-009507513-1210USA011238

PATIENT
  Age: 56 Year
  Sex: Male
  Weight: 104.31 kg

DRUGS (6)
  1. JANUVIA [Suspect]
     Indication: DIABETES MELLITUS
     Dosage: 50 MG, QD
     Route: 048
     Dates: start: 20090825, end: 20100722
  2. TRICOR (FENOFIBRATE) [Concomitant]
     Indication: BLOOD TRIGLYCERIDES ABNORMAL
     Dosage: 145 MG DAILY
     Route: 048
     Dates: start: 20080822
  3. METOPROLOL [Concomitant]
     Indication: HYPERTENSION
     Dosage: 50 MG DAILY
     Route: 048
     Dates: start: 20080813
  4. HYDROCHLOROTHIAZIDE [Concomitant]
     Indication: HYPERTENSION
     Dosage: 25 MG DAILY
     Route: 048
     Dates: start: 20080813
  5. LIPITOR [Concomitant]
     Indication: LIPIDS ABNORMAL
     Dosage: 40 MG DAILY
     Route: 048
     Dates: start: 20090302
  6. AVANDIA [Concomitant]
     Indication: DIABETES MELLITUS
     Dosage: 8 MG DAILY
     Route: 048
     Dates: start: 20090302

REACTIONS (1)
  - Pancreatitis acute [Recovered/Resolved]
